FAERS Safety Report 9272332 (Version 2)
Quarter: 2013Q2

REPORT INFORMATION
  Report Type: Spontaneous
  Country: DE (occurrence: DE)
  Receive Date: 20130506
  Receipt Date: 20130506
  Transmission Date: 20140414
  Serious: Yes (Other)
  Sender: FDA-Public Use
  Company Number: DE-BAYER-2013-025661

PATIENT
  Age: 48 Year
  Sex: Female
  Weight: 65 kg

DRUGS (2)
  1. MAGNOGRAF [Suspect]
     Indication: NUCLEAR MAGNETIC RESONANCE IMAGING
     Dosage: 15 ML, ONCE
     Route: 042
     Dates: start: 20121026, end: 20121026
  2. MAGNOGRAF [Suspect]
     Indication: RENAL NEOPLASM

REACTIONS (3)
  - Hypertensive crisis [Unknown]
  - Flushing [Unknown]
  - Urticaria [Unknown]
